FAERS Safety Report 7352239-3 (Version None)
Quarter: 2011Q1

REPORT INFORMATION
  Report Type: 
  Country: None (occurrence: None)
  Receive Date: 20110315
  Receipt Date: 20110303
  Transmission Date: 20110831
  Serious: Yes (Hospitalization)
  Sender: FDA-Public Use
  Company Number: JP-JNJFOC-20110204807

PATIENT
  Sex: Male

DRUGS (9)
  1. FINIBAX [Suspect]
     Indication: PNEUMONIA
     Route: 041
  2. RENIVACE [Concomitant]
     Indication: HYPERTENSION
     Route: 048
  3. JANUVIA [Concomitant]
     Indication: DIABETES MELLITUS
     Route: 048
  4. FINIBAX [Suspect]
     Route: 041
  5. AMARYL [Concomitant]
     Indication: DIABETES MELLITUS
     Route: 048
  6. AMLODIPINE [Concomitant]
     Indication: CARDIAC FAILURE
     Route: 048
  7. PAXIL [Concomitant]
     Indication: DEPRESSION
     Route: 048
  8. LASIX [Concomitant]
     Indication: CARDIAC FAILURE
     Route: 048
  9. WARFARIN [Concomitant]
     Indication: ATRIAL FIBRILLATION
     Route: 048

REACTIONS (2)
  - RED BLOOD CELL COUNT DECREASED [None]
  - LEUKOPENIA [None]
